FAERS Safety Report 7780248-9 (Version None)
Quarter: 2011Q3

REPORT INFORMATION
  Report Type: 
  Country: None (occurrence: None)
  Receive Date: 20110927
  Receipt Date: 20110920
  Transmission Date: 20111222
  Serious: Yes (Hospitalization, Other)
  Sender: FDA-Public Use
  Company Number: US-JNJFOC-20100806045

PATIENT
  Sex: Male

DRUGS (3)
  1. LEVAQUIN [Suspect]
     Indication: STAPHYLOCOCCAL INFECTION
     Route: 048
  2. LEVAQUIN [Suspect]
     Indication: INFECTION
     Route: 042
  3. LEVAQUIN [Suspect]
     Indication: PRODUCT USED FOR UNKNOWN INDICATION
     Route: 048

REACTIONS (5)
  - SYNOVITIS [None]
  - TENDON RUPTURE [None]
  - MENISCUS LESION [None]
  - ARTHRALGIA [None]
  - TREATMENT NONCOMPLIANCE [None]
